FAERS Safety Report 4622257-4 (Version None)
Quarter: 2005Q1

REPORT INFORMATION
  Report Type: 
  Country: None (occurrence: None)
  Receive Date: 20050324
  Receipt Date: 20050324
  Transmission Date: 20050727
  Serious: No
  Sender: FDA-Public Use
  Company Number: None

PATIENT
  Sex: Male
  Weight: 99 kg

DRUGS (2)
  1. LEUCOVORIN CALCIUM [Suspect]
     Dosage: 20MG/M2 IV PUSH ON DAYS 1-5 OF A 28 DAY CYCLE
     Route: 042
     Dates: start: 20041108
  2. FLUOROURACIL [Suspect]
     Dosage: 425MG/M2 IV PUSH ON DAYS 1-5 OF A 28 DAY CYCLE
     Route: 042

REACTIONS (4)
  - IMPLANT SITE ERYTHEMA [None]
  - IMPLANT SITE INFECTION [None]
  - NAUSEA [None]
  - VOMITING [None]
